FAERS Safety Report 25131963 (Version 1)
Quarter: 2025Q1

REPORT INFORMATION
  Report Type: Spontaneous
  Country: US (occurrence: US)
  Receive Date: 20250327
  Receipt Date: 20250327
  Transmission Date: 20250409
  Serious: No
  Sender: AMGEN
  Company Number: US-AMGEN-USASP2025059551

PATIENT
  Age: 56 Year
  Sex: Male

DRUGS (3)
  1. OTEZLA [Suspect]
     Active Substance: APREMILAST
     Indication: Psoriatic arthropathy
     Dosage: 30 MILLIGRAM, BID
     Route: 048
     Dates: start: 20250228
  2. CLOBETASOL [Concomitant]
     Active Substance: CLOBETASOL
  3. Triamcinolon [Concomitant]

REACTIONS (4)
  - Loss of personal independence in daily activities [Unknown]
  - Pain [Unknown]
  - Infection [Unknown]
  - Diarrhoea [Unknown]

NARRATIVE: CASE EVENT DATE: 20250101
